FAERS Safety Report 8134983-3 (Version None)
Quarter: 2012Q1

REPORT INFORMATION
  Report Type: 
  Country: None (occurrence: None)
  Receive Date: 20120214
  Receipt Date: 20120206
  Transmission Date: 20120608
  Serious: No
  Sender: FDA-Public Use
  Company Number: US-B.I. PHARMACEUTICALS,INC./RIDGEFIELD-2012-BP-02338BP

PATIENT
  Sex: Female

DRUGS (1)
  1. COMBIVENT [Suspect]

REACTIONS (6)
  - FEELING ABNORMAL [None]
  - DYSPNOEA [None]
  - THROAT IRRITATION [None]
  - DRUG INEFFECTIVE [None]
  - DYSPHONIA [None]
  - PULMONARY CONGESTION [None]
